FAERS Safety Report 16365512 (Version 1)
Quarter: 2019Q2

REPORT INFORMATION
  Report Type: Spontaneous
  Country: CA (occurrence: CA)
  Receive Date: 20190529
  Receipt Date: 20190529
  Transmission Date: 20190711
  Serious: Yes (Hospitalization, Other)
  Sender: FDA-Public Use
  Company Number: CA-ACCORD-129649

PATIENT
  Age: 45 Year
  Sex: Female

DRUGS (8)
  1. LORAZEPAM. [Concomitant]
     Active Substance: LORAZEPAM
     Indication: HALLUCINATION, AUDITORY
     Dosage: 6 TO 12 MG
  2. LORAZEPAM. [Concomitant]
     Active Substance: LORAZEPAM
     Indication: DEPRESSION
     Dosage: 6 TO 12 MG
  3. TACROLIMUS. [Suspect]
     Active Substance: TACROLIMUS
     Indication: HEPATO-LENTICULAR DEGENERATION
  4. MYCOPHENOLATE MOFETIL/MYCOPHENOLATE SODIUM/MYCOPHENOLIC ACID [Concomitant]
     Indication: HEPATO-LENTICULAR DEGENERATION
  5. LORAZEPAM. [Concomitant]
     Active Substance: LORAZEPAM
     Indication: HALLUCINATION, AUDITORY
     Dosage: UP TO 4 MG DAILY
  6. LORAZEPAM. [Concomitant]
     Active Substance: LORAZEPAM
     Indication: HALLUCINATION, AUDITORY
     Dosage: 6 TO 12 MG
  7. LORAZEPAM. [Concomitant]
     Active Substance: LORAZEPAM
     Indication: HALLUCINATION, AUDITORY
     Dosage: UP TO 4 MG DAILY
  8. LORAZEPAM. [Concomitant]
     Active Substance: LORAZEPAM
     Indication: HALLUCINATION, AUDITORY
     Dosage: 6 TO 12 MG

REACTIONS (5)
  - Mutism [Recovering/Resolving]
  - Catatonia [Recovering/Resolving]
  - Off label use [Unknown]
  - Hypomagnesaemia [Unknown]
  - Cognitive disorder [Recovering/Resolving]
